FAERS Safety Report 8364651-4 (Version None)
Quarter: 2012Q2

REPORT INFORMATION
  Report Type: 
  Country: None (occurrence: None)
  Receive Date: 20120516
  Receipt Date: 20120509
  Transmission Date: 20120825
  Serious: Yes (Hospitalization)
  Sender: FDA-Public Use
  Company Number: US-AMGEN-USASP2012029424

PATIENT
  Age: 64 Year
  Sex: Male

DRUGS (2)
  1. ENBREL [Suspect]
     Indication: RHEUMATOID ARTHRITIS
     Dosage: 50 MG, QWK
     Dates: start: 20020101
  2. METHOTREXATE [Concomitant]
     Dosage: 1 MG, UNK
     Dates: start: 20020101

REACTIONS (8)
  - CONDUCTION DISORDER [None]
  - DRUG INEFFECTIVE [None]
  - SEPSIS [None]
  - FATIGUE [None]
  - DIZZINESS [None]
  - MEDICAL DEVICE COMPLICATION [None]
  - NAUSEA [None]
  - VOMITING [None]
